FAERS Safety Report 5144765-2 (Version None)
Quarter: 2006Q4

REPORT INFORMATION
  Report Type: 
  Country: None (occurrence: None)
  Receive Date: 20060912
  Receipt Date: 20050920
  Transmission Date: 20070319
  Serious: Yes (Hospitalization)
  Sender: FDA-Public Use
  Company Number: 1-13177273

PATIENT
  Age: 42 Year
  Sex: Female

DRUGS (1)
  1. BACTRIM DS [Suspect]
     Indication: CELLULITIS ORBITAL
     Dosage: ORAL
     Route: 048
     Dates: start: 20050101

REACTIONS (2)
  - DRUG INEFFECTIVE [None]
  - INFECTION [None]
